FAERS Safety Report 4483741-X (Version None)
Quarter: 2004Q4

REPORT INFORMATION
  Report Type: 
  Country: None (occurrence: None)
  Receive Date: 20041022
  Receipt Date: 20041022
  Transmission Date: 20050328
  Serious: Yes (Other)
  Sender: FDA-Public Use
  Company Number: None

PATIENT
  Age: 66 Year
  Sex: Female
  Weight: 67.1324 kg

DRUGS (3)
  1. PRILOSEC OTC [Suspect]
     Indication: GASTROOESOPHAGEAL REFLUX DISEASE
     Dosage: 1 TAB EACH DAY
  2. PRILOSEC OTC [Suspect]
     Indication: INFLAMMATION
     Dosage: 1 TAB EACH DAY
  3. PRILOSEC OTC [Suspect]
     Indication: OESOPHAGEAL DISORDER
     Dosage: 1 TAB EACH DAY

REACTIONS (4)
  - DRUG EFFECT DECREASED [None]
  - DYSPEPSIA [None]
  - PHARMACEUTICAL PRODUCT COMPLAINT [None]
  - STOMACH DISCOMFORT [None]
